FAERS Safety Report 24343187 (Version 1)
Quarter: 2024Q3

REPORT INFORMATION
  Report Type: Spontaneous
  Country: IT (occurrence: IT)
  Receive Date: 20240920
  Receipt Date: 20240920
  Transmission Date: 20241016
  Serious: Yes (Hospitalization, Other)
  Sender: HIKMA
  Company Number: IT-HIKMA PHARMACEUTICALS-IT-H14001-24-08530

PATIENT
  Age: 54 Year
  Sex: Female
  Weight: 55 kg

DRUGS (5)
  1. CARBOPLATIN [Suspect]
     Active Substance: CARBOPLATIN
     Indication: Product used for unknown indication
     Dosage: UNK, 3W
     Route: 042
     Dates: start: 20240614, end: 20240816
  2. LORLATINIB [Suspect]
     Active Substance: LORLATINIB
     Indication: Product used for unknown indication
     Dosage: 100 MILLIGRAM, QD
     Route: 065
     Dates: start: 20231204
  3. PEMETREXED [Suspect]
     Active Substance: PEMETREXED
     Indication: Product used for unknown indication
     Dosage: 1000 MILLIGRAM, 3W
     Route: 042
     Dates: start: 20240614
  4. FONDAPARINUX SODIUM [Concomitant]
     Active Substance: FONDAPARINUX SODIUM
     Indication: Venous thrombosis
     Dosage: UNK
     Route: 058
     Dates: start: 20240718, end: 20240812
  5. ROSUVASTATIN [Concomitant]
     Active Substance: ROSUVASTATIN\ROSUVASTATIN CALCIUM
     Indication: Hypercholesterolaemia
     Dosage: UNK
     Route: 048

REACTIONS (2)
  - Venous thrombosis [Unknown]
  - Febrile neutropenia [Recovered/Resolved]

NARRATIVE: CASE EVENT DATE: 20240823
